FAERS Safety Report 13346714 (Version 2)
Quarter: 2017Q4

REPORT INFORMATION
  Report Type: Spontaneous
  Country: JP (occurrence: JP)
  Receive Date: 20170317
  Receipt Date: 20171003
  Transmission Date: 20180320
  Serious: Yes (Other)
  Sender: FDA-Public Use
  Company Number: JP-ASTRAZENECA-2017SE27997

PATIENT
  Age: 54 Year
  Sex: Male

DRUGS (15)
  1. DIPYRIDAMOLE. [Concomitant]
     Active Substance: DIPYRIDAMOLE
     Route: 048
  2. KASTAROL [Concomitant]
     Route: 048
  3. LUVOX [Concomitant]
     Active Substance: FLUVOXAMINE MALEATE
     Dosage: 50.0MG UNKNOWN
     Route: 065
  4. APIDRA [Concomitant]
     Active Substance: INSULIN GLULISINE
     Route: 058
  5. GLACTIV [Concomitant]
     Active Substance: SITAGLIPTIN
     Route: 048
  6. NEXIUM [Concomitant]
     Active Substance: ESOMEPRAZOLE MAGNESIUM
     Route: 048
  7. URSO [Concomitant]
     Active Substance: URSODIOL
     Route: 048
  8. NORVASC [Concomitant]
     Active Substance: AMLODIPINE BESYLATE
     Dosage: 5.0MG UNKNOWN
     Route: 065
  9. FORXIGA [Suspect]
     Active Substance: DAPAGLIFLOZIN
     Indication: DIABETES MELLITUS
     Route: 048
     Dates: start: 20170202, end: 20170311
  10. LOTRIGA [Concomitant]
     Active Substance: OMEGA-3-ACID ETHYL ESTERS
     Dosage: 2.0MG UNKNOWN
     Route: 048
  11. CAMOSTAT MESILATE [Concomitant]
     Active Substance: CAMOSTAT MESYLATE
     Route: 048
  12. LANTUS [Concomitant]
     Active Substance: INSULIN GLARGINE
     Route: 058
  13. METGLUCO [Concomitant]
     Active Substance: METFORMIN HYDROCHLORIDE
     Route: 048
  14. RETICOLAN [Concomitant]
     Active Substance: METHYLCOBALAMIN
     Dosage: 500.0DF UNKNOWN
     Route: 065
  15. ZETIA [Concomitant]
     Active Substance: EZETIMIBE
     Route: 048

REACTIONS (2)
  - Drug eruption [Recovering/Resolving]
  - Pruritus [Unknown]

NARRATIVE: CASE EVENT DATE: 2017
